FAERS Safety Report 5068613-4 (Version None)
Quarter: 2006Q3

REPORT INFORMATION
  Report Type: 
  Country: None (occurrence: None)
  Receive Date: 20060802
  Receipt Date: 20060105
  Transmission Date: 20061208
  Serious: No
  Sender: FDA-Public Use
  Company Number: US-BRISTOL-MYERS SQUIBB COMPANY-13237953

PATIENT
  Age: 81 Year
  Sex: Female
  Weight: 60 kg

DRUGS (6)
  1. COUMADIN [Suspect]
     Indication: HEART RATE INCREASED
  2. ASPIRIN [Concomitant]
  3. DIGITEK [Concomitant]
  4. FUROSEMIDE [Concomitant]
  5. LISINOPRIL [Concomitant]
  6. TOPROL-XL [Concomitant]

REACTIONS (2)
  - CHROMATURIA [None]
  - INTERNATIONAL NORMALISED RATIO INCREASED [None]
